FAERS Safety Report 8630813 (Version 8)
Quarter: 2013Q3

REPORT INFORMATION
  Report Type: Spontaneous
  Country: JP (occurrence: JP)
  Receive Date: 20120622
  Receipt Date: 20130729
  Transmission Date: 20140515
  Serious: Yes (Life-Threatening, Hospitalization, Other)
  Sender: FDA-Public Use
  Company Number: JP-MSD-1206USA03562

PATIENT
  Age: 93 Year
  Sex: Female
  Weight: 37 kg

DRUGS (3)
  1. PREMINENT TABLETS [Suspect]
     Indication: HYPERTENSION
     Dosage: 1 DF, QD
     Route: 048
     Dates: start: 20120214, end: 20120610
  2. TAKEPRON [Concomitant]
     Indication: GASTROOESOPHAGEAL REFLUX DISEASE
     Dosage: 15 MG, QD
     Route: 048
     Dates: start: 20090205, end: 20120610
  3. FLUMETHOLON [Concomitant]
     Dosage: DAILY DOSAGE UNKNOWN
     Route: 047

REACTIONS (6)
  - Acute hepatic failure [Recovering/Resolving]
  - Hepatic encephalopathy [Recovered/Resolved]
  - Gastric ulcer haemorrhage [Recovering/Resolving]
  - Shock haemorrhagic [Recovered/Resolved]
  - Haematemesis [Recovered/Resolved]
  - Biliary dilatation [Unknown]
